FAERS Safety Report 5011607-5 (Version None)
Quarter: 2006Q2

REPORT INFORMATION
  Report Type: 
  Country: None (occurrence: None)
  Receive Date: 20060404
  Receipt Date: 20060117
  Transmission Date: 20061013
  Serious: No
  Sender: FDA-Public Use
  Company Number: US200601002887

PATIENT
  Age: 48 Year
  Sex: Male

DRUGS (4)
  1. CYMBALTA [Suspect]
     Indication: BIPOLAR DISORDER
     Dosage: 60 MG, DAILY (1/D)
     Dates: start: 20050101
  2. ESZOPICLONE (ESZOPICLONE) [Concomitant]
  3. LAMICTAL [Concomitant]
  4. KLONOPIN [Concomitant]

REACTIONS (2)
  - CRYING [None]
  - DEPRESSION [None]
